FAERS Safety Report 4837289-0 (Version None)
Quarter: 2005Q4

REPORT INFORMATION
  Report Type: 
  Country: None (occurrence: None)
  Receive Date: 20051122
  Receipt Date: 20051114
  Transmission Date: 20060501
  Serious: Yes (Other)
  Sender: FDA-Public Use
  Company Number: TUK2005A00076

PATIENT
  Sex: Female

DRUGS (2)
  1. ACTOS [Suspect]
     Dates: start: 20051011
  2. INSULATARD NPH HUMAN [Concomitant]

REACTIONS (2)
  - DYSPNOEA [None]
  - PALPITATIONS [None]
